FAERS Safety Report 8879317 (Version 3)
Quarter: 2013Q3

REPORT INFORMATION
  Report Type: Report from Study
  Country: JP (occurrence: JP)
  Receive Date: 20121101
  Receipt Date: 20130919
  Transmission Date: 20140515
  Serious: Yes (Other)
  Sender: FDA-Public Use
  Company Number: JP-009507513-1210JPN010447

PATIENT
  Age: 62 Year
  Sex: Female

DRUGS (50)
  1. EMEND [Suspect]
     Indication: PROPHYLAXIS OF NAUSEA AND VOMITING
     Dosage: 125 MG, QD DAY 1 OF FIRST COURSE
     Route: 048
     Dates: start: 20110202, end: 20110202
  2. EMEND [Suspect]
     Dosage: 80 MG, QD
     Route: 048
     Dates: start: 20110203, end: 20110206
  3. EMEND [Suspect]
     Dosage: 125 MG, ONCE, SAY 1 OF SECOND COURSE
     Route: 048
     Dates: start: 20110302, end: 20110302
  4. EMEND [Suspect]
     Dosage: 80 MG, QD
     Route: 048
     Dates: start: 20110303, end: 20110306
  5. EMEND [Suspect]
     Dosage: DAY 1 OF THE THIRD COURSE 125 MG, ONCE
     Route: 048
     Dates: start: 20110330, end: 20110330
  6. EMEND [Suspect]
     Dosage: 80 MG, QD
     Route: 048
     Dates: start: 20110331, end: 20110403
  7. EMEND [Suspect]
     Dosage: 125 MG, ONCE DAY 1 OF FOURTH COURSE
     Route: 048
     Dates: start: 20110427, end: 20110427
  8. EMEND [Suspect]
     Dosage: 80 MG, QD
     Route: 048
     Dates: start: 20110428, end: 20110501
  9. EMEND [Suspect]
     Dosage: 125 MG, ONCE DAY 1 OF 5TH COURSE
     Route: 048
     Dates: start: 20110525, end: 20110525
  10. EMEND [Suspect]
     Dosage: 80 MG, QD
     Route: 048
     Dates: start: 20110526, end: 20110529
  11. EMEND [Suspect]
     Dosage: 125 MG, ONCE DAY 1 OF 6TH COURSE
     Route: 048
     Dates: start: 20110622, end: 20110622
  12. EMEND [Suspect]
     Dosage: 80 MG, QD
     Route: 048
     Dates: start: 20110623, end: 20110626
  13. EPIRUBICIN HYDROCHLORIDE [Concomitant]
     Dosage: UNK
     Dates: start: 20110202, end: 20110202
  14. EPIRUBICIN HYDROCHLORIDE [Concomitant]
     Dosage: UNK
     Dates: start: 20110330, end: 20110330
  15. EPIRUBICIN HYDROCHLORIDE [Concomitant]
     Dosage: UNK
     Dates: start: 20110427, end: 20110427
  16. EPIRUBICIN HYDROCHLORIDE [Concomitant]
     Dosage: UNK
     Dates: start: 20110525, end: 20110525
  17. EPIRUBICIN HYDROCHLORIDE [Concomitant]
     Dosage: UNK
     Dates: start: 20110622, end: 20110622
  18. EPIRUBICIN HYDROCHLORIDE [Concomitant]
     Dosage: UNK
     Dates: start: 20110302, end: 20110302
  19. ENDOXAN [Concomitant]
     Dosage: UNK
     Dates: start: 20110202, end: 20110202
  20. ENDOXAN [Concomitant]
     Dosage: UNK
     Dates: start: 20110302, end: 20110302
  21. ENDOXAN [Concomitant]
     Dosage: UNK
     Dates: start: 20110330, end: 20110330
  22. ENDOXAN [Concomitant]
     Dosage: UNK
     Dates: start: 20110427, end: 20110427
  23. ENDOXAN [Concomitant]
     Dosage: UNK
     Dates: start: 20110525, end: 20110525
  24. ENDOXAN [Concomitant]
     Dosage: UNK
     Dates: start: 20110622, end: 20110622
  25. FLUOROURACIL [Concomitant]
     Dosage: UNK
     Dates: start: 20110202, end: 20110202
  26. FLUOROURACIL [Concomitant]
     Dosage: UNK
     Dates: start: 20110302, end: 20110302
  27. FLUOROURACIL [Concomitant]
     Dosage: UNK
     Dates: start: 20110330, end: 20110330
  28. FLUOROURACIL [Concomitant]
     Dosage: UNK
     Dates: start: 20110427, end: 20110427
  29. FLUOROURACIL [Concomitant]
     Dosage: UNK
     Dates: start: 20110525, end: 20110525
  30. FLUOROURACIL [Concomitant]
     Dosage: UNK
     Dates: start: 20110622, end: 20110622
  31. DECADRON PHOSPHATE INJECTION [Concomitant]
     Dosage: UNK
     Dates: start: 20110202, end: 20110202
  32. DECADRON PHOSPHATE INJECTION [Concomitant]
     Dosage: UNK
     Route: 048
     Dates: start: 20110302, end: 20110302
  33. DECADRON PHOSPHATE INJECTION [Concomitant]
     Dosage: UNK
     Route: 048
     Dates: start: 20110330, end: 20110330
  34. DECADRON PHOSPHATE INJECTION [Concomitant]
     Dosage: UNK
     Route: 048
     Dates: start: 20110427, end: 20110427
  35. DECADRON PHOSPHATE INJECTION [Concomitant]
     Dosage: UNK
     Route: 048
     Dates: start: 20110525, end: 20110525
  36. DECADRON PHOSPHATE INJECTION [Concomitant]
     Dosage: UNK
     Route: 048
     Dates: start: 20110622, end: 20110622
  37. ALOXI [Concomitant]
     Dosage: UNK
     Dates: start: 20110202, end: 20110202
  38. ALOXI [Concomitant]
     Dosage: UNK
     Dates: start: 20110302, end: 20110302
  39. ALOXI [Concomitant]
     Dosage: UNK
     Dates: start: 20110330, end: 20110330
  40. ALOXI [Concomitant]
     Dosage: UNK
     Dates: start: 20110427, end: 20110427
  41. ALOXI [Concomitant]
     Dosage: UNK
     Dates: start: 20110525, end: 20110525
  42. ALOXI [Concomitant]
     Dosage: UNK
     Dates: start: 20110622, end: 20110622
  43. DECADRON [Concomitant]
     Dosage: UNK
     Route: 048
     Dates: start: 20110203, end: 20110205
  44. DECADRON [Concomitant]
     Dosage: UNK
     Route: 048
     Dates: start: 20110303, end: 20110305
  45. DECADRON [Concomitant]
     Dosage: UNK
     Route: 048
     Dates: start: 20110331, end: 20110402
  46. DECADRON [Concomitant]
     Dosage: UNK
     Route: 048
     Dates: start: 20110428, end: 20110430
  47. DECADRON [Concomitant]
     Dosage: UNK
     Route: 048
     Dates: start: 20110526, end: 20110528
  48. DECADRON [Concomitant]
     Dosage: UNK
     Route: 048
     Dates: start: 20110623, end: 20110625
  49. NAIXAN [Concomitant]
     Dosage: UNK
     Dates: start: 20110202, end: 20110706
  50. METHYCOBAL [Concomitant]
     Dosage: UNK
     Dates: start: 20110202, end: 20110706

REACTIONS (1)
  - No adverse event [Unknown]
